FAERS Safety Report 16452587 (Version 1)
Quarter: 2019Q2

REPORT INFORMATION
  Report Type: Spontaneous
  Country: US (occurrence: US)
  Receive Date: 20190619
  Receipt Date: 20190619
  Transmission Date: 20190711
  Serious: No
  Sender: FDA-Public Use
  Company Number: US-ROCHE-2166069

PATIENT

DRUGS (7)
  1. ORENCIA [Concomitant]
     Active Substance: ABATACEPT
  2. ACTEMRA [Suspect]
     Active Substance: TOCILIZUMAB
     Indication: RHEUMATOID ARTHRITIS
     Route: 065
  3. CIMZIA [Concomitant]
     Active Substance: CERTOLIZUMAB PEGOL
  4. METHOTREXATE ORAL [Concomitant]
     Active Substance: METHOTREXATE
     Route: 048
  5. HUMIRA [Concomitant]
     Active Substance: ADALIMUMAB
  6. ARAVA [Concomitant]
     Active Substance: LEFLUNOMIDE
  7. ENBREL [Concomitant]
     Active Substance: ETANERCEPT

REACTIONS (1)
  - Hypersensitivity [Unknown]
